FAERS Safety Report 15152131 (Version 1)
Quarter: 2018Q3

REPORT INFORMATION
  Report Type: Spontaneous
  Country: FR (occurrence: FR)
  Receive Date: 20180717
  Receipt Date: 20180717
  Transmission Date: 20181010
  Serious: Yes (Other)
  Sender: FDA-Public Use
  Company Number: FR-TEVA-2018-FR-926357

PATIENT
  Age: 19 Year
  Sex: Female

DRUGS (1)
  1. KETOPROFEN. [Suspect]
     Active Substance: KETOPROFEN
     Route: 065

REACTIONS (3)
  - Hepatocellular injury [Recovered/Resolved]
  - Atypical haemolytic uraemic syndrome [Recovering/Resolving]
  - Cardiomyopathy [Recovered/Resolved]
